FAERS Safety Report 10039244 (Version 2)
Quarter: 2014Q1

REPORT INFORMATION
  Report Type: Report from Study
  Country: GB (occurrence: GB)
  Receive Date: 20140326
  Receipt Date: 20140326
  Transmission Date: 20141002
  Serious: Yes (Death, Hospitalization)
  Sender: FDA-Public Use
  Company Number: PHHO2014GB002183

PATIENT
  Sex: 0

DRUGS (10)
  1. BLINDED ACZ885 [Suspect]
     Indication: CARDIOVASCULAR EVENT PROPHYLAXIS
     Dosage: CODE NOT BROKEN
     Route: 058
     Dates: start: 20130404, end: 20131227
  2. BLINDED NO TREATMENT RECEIVED [Suspect]
     Indication: CARDIOVASCULAR EVENT PROPHYLAXIS
     Dosage: CODE NOT BROKEN
     Route: 058
     Dates: start: 20130404, end: 20131227
  3. BLINDED PLACEBO [Suspect]
     Indication: CARDIOVASCULAR EVENT PROPHYLAXIS
     Dosage: CODE NOT BROKEN
     Route: 058
     Dates: start: 20130404, end: 20131227
  4. PRASUGREL [Suspect]
     Indication: ANTIPLATELET THERAPY
     Dosage: 10 MG, ONCE/SINGLE, DAILY
     Dates: start: 201209
  5. ASPIRIN [Concomitant]
     Indication: ANTIPLATELET THERAPY
     Dosage: 75 MG, ONCE/SINGLE, DAILY
     Dates: start: 201209, end: 20140315
  6. FUROSEMIDE [Concomitant]
     Indication: PROPHYLAXIS
     Dosage: 40 MG, ONCE/SINGLE, DAILY
     Dates: start: 201209, end: 20140314
  7. BISOPROLOL [Concomitant]
     Indication: PROPHYLAXIS
     Dosage: 5 MG, ONCE/SINGLE, DAILY
     Dates: start: 201209, end: 20140314
  8. PERINDOPRIL [Concomitant]
     Indication: PROPHYLAXIS
     Dosage: 4 MG, ONCE/SINGLE, DAILY
     Dates: start: 201209, end: 20140314
  9. ATORVASTATIN [Concomitant]
     Indication: PROPHYLAXIS
     Dosage: 80 MG, ONCE/SINGLE
     Dates: start: 201209
  10. PARACETAMOL [Concomitant]
     Indication: ANALGESIC THERAPY
     Dosage: 1 G, PRN
     Dates: start: 20140220

REACTIONS (3)
  - Pharyngeal neoplasm [Fatal]
  - Blood urine present [Not Recovered/Not Resolved]
  - Abdominal pain lower [Not Recovered/Not Resolved]
